FAERS Safety Report 23087068 (Version 1)
Quarter: 2023Q4

REPORT INFORMATION
  Report Type: Spontaneous
  Country: AU (occurrence: AU)
  Receive Date: 20231020
  Receipt Date: 20231020
  Transmission Date: 20240110
  Serious: Yes (Death, Hospitalization, Other)
  Sender: FDA-Public Use
  Company Number: AU-HALEON-AUCH2023APC049590

PATIENT

DRUGS (10)
  1. PANADOL [Suspect]
     Active Substance: ACETAMINOPHEN
     Indication: Product used for unknown indication
     Dosage: UNK
  2. IBUPROFEN [Suspect]
     Active Substance: IBUPROFEN
     Indication: Product used for unknown indication
     Dosage: UNK
  3. COMIRNATY (TOZINAMERAN) [Suspect]
     Active Substance: TOZINAMERAN
     Indication: Product used for unknown indication
     Dosage: UNK
     Dates: start: 20220121
  4. COMIRNATY (TOZINAMERAN) [Suspect]
     Active Substance: TOZINAMERAN
     Dosage: UNK
     Route: 030
     Dates: start: 20210707
  5. COMIRNATY (TOZINAMERAN) [Suspect]
     Active Substance: TOZINAMERAN
     Dosage: UNK
     Dates: start: 20210728
  6. ATORVASTATIN [Suspect]
     Active Substance: ATORVASTATIN
     Indication: Product used for unknown indication
     Dosage: UNK
  7. ESCITALOPRAM OXALATE [Suspect]
     Active Substance: ESCITALOPRAM OXALATE
     Indication: Product used for unknown indication
     Dosage: UNK
  8. QUETIAPINE FUMARATE [Suspect]
     Active Substance: QUETIAPINE FUMARATE
     Indication: Product used for unknown indication
     Dosage: UNK
  9. ALLOPURINOL [Concomitant]
     Active Substance: ALLOPURINOL
     Indication: Product used for unknown indication
     Dosage: UNK
  10. THIAMINE HYDROCHLORIDE [Concomitant]
     Active Substance: THIAMINE HYDROCHLORIDE
     Indication: Product used for unknown indication
     Dosage: UNK

REACTIONS (27)
  - Abdominal pain [Fatal]
  - Acute kidney injury [Fatal]
  - Blood creatine phosphokinase increased [Fatal]
  - Cerebral infarction [Fatal]
  - Decreased appetite [Fatal]
  - Electrocardiogram abnormal [Fatal]
  - Haematuria [Fatal]
  - Headache [Fatal]
  - Hypogammaglobulinaemia [Fatal]
  - Intestinal ischaemia [Fatal]
  - Liver injury [Fatal]
  - Malaise [Fatal]
  - Metabolic disorder [Fatal]
  - Multiple organ dysfunction syndrome [Fatal]
  - Myalgia [Fatal]
  - Myopathy [Fatal]
  - Myositis [Fatal]
  - Ovarian cancer [Fatal]
  - Pain in extremity [Fatal]
  - Pneumonia [Fatal]
  - Rhabdomyolysis [Fatal]
  - Septic shock [Fatal]
  - Tachycardia [Fatal]
  - Thrombocytopenia [Fatal]
  - Thrombosis [Fatal]
  - Vasoplegia syndrome [Fatal]
  - Vomiting [Fatal]

NARRATIVE: CASE EVENT DATE: 20220121
